FAERS Safety Report 17791295 (Version 1)
Quarter: 2020Q2

REPORT INFORMATION
  Report Type: Spontaneous
  Country: US (occurrence: US)
  Receive Date: 20200515
  Receipt Date: 20200515
  Transmission Date: 20200714
  Serious: Yes (Disabling)
  Sender: FDA-Public Use
  Company Number: None

PATIENT
  Age: 62 Year
  Sex: Female
  Weight: 51.75 kg

DRUGS (8)
  1. CIPROFLOXACIN HCL [Suspect]
     Active Substance: CIPROFLOXACIN HYDROCHLORIDE
     Indication: URINARY TRACT INFECTION
     Route: 048
     Dates: start: 20200507, end: 20200514
  2. VITAMIN D2 SUPPLEMENT [Concomitant]
  3. B12 ORAL SUPPLEMENT [Concomitant]
  4. MULTIVITAMIN [Concomitant]
     Active Substance: VITAMINS
  5. D-MANNOSE SUPPLEMENT [Concomitant]
  6. TERAZOSIN [Concomitant]
     Active Substance: TERAZOSIN HYDROCHLORIDE
  7. BETHANECHOL [Concomitant]
     Active Substance: BETHANECHOL
  8. CALCIUM/MAGNESIUM SUPPLEMENT [Concomitant]

REACTIONS (4)
  - Muscle tightness [None]
  - Hypoaesthesia [None]
  - Musculoskeletal stiffness [None]
  - Asthenia [None]
